FAERS Safety Report 7153035-2 (Version None)
Quarter: 2010Q4

REPORT INFORMATION
  Report Type: 
  Country: None (occurrence: None)
  Receive Date: 20101213
  Receipt Date: 20101012
  Transmission Date: 20110411
  Serious: Yes (Other)
  Sender: FDA-Public Use
  Company Number: GB-NOVOPROD-317924

PATIENT

DRUGS (2)
  1. MIXTARD HUMAN 70/30 [Suspect]
     Indication: OFF LABEL USE
  2. PARACETAMOL [Concomitant]

REACTIONS (3)
  - HYPOGLYCAEMIA [None]
  - INTENTIONAL DRUG MISUSE [None]
  - VICTIM OF CHILD ABUSE [None]
